FAERS Safety Report 24191497 (Version 1)
Quarter: 2024Q3

REPORT INFORMATION
  Report Type: Spontaneous
  Country: US (occurrence: None)
  Receive Date: 20240808
  Receipt Date: 20240808
  Transmission Date: 20241017
  Serious: No
  Sender: ASTRAZENECA
  Company Number: 2024A159270

PATIENT
  Sex: Female

DRUGS (2)
  1. BYDUREON BCISE [Suspect]
     Active Substance: EXENATIDE
     Dosage: 2.0MG UNKNOWN
  2. BYDUREON [Suspect]
     Active Substance: EXENATIDE

REACTIONS (5)
  - Diarrhoea [Unknown]
  - Injection site haemorrhage [Unknown]
  - Device defective [Unknown]
  - Device delivery system issue [Unknown]
  - Device use issue [Unknown]
